FAERS Safety Report 5919352-6 (Version None)
Quarter: 2008Q4

REPORT INFORMATION
  Report Type: 
  Country: None (occurrence: None)
  Receive Date: 20081015
  Receipt Date: 20081010
  Transmission Date: 20090506
  Serious: Yes (Other)
  Sender: FDA-Public Use
  Company Number: A0751351A

PATIENT
  Age: 45 Year
  Sex: Female

DRUGS (10)
  1. COREG [Suspect]
     Route: 048
     Dates: start: 20070201, end: 20070201
  2. AZT [Suspect]
     Indication: ACQUIRED IMMUNODEFICIENCY SYNDROME
     Route: 065
  3. EPZICOM [Concomitant]
  4. REYATAZ [Concomitant]
  5. ACYCLOVIR SODIUM [Concomitant]
  6. LISINOPRIL [Concomitant]
  7. PLAVIX [Concomitant]
  8. ASPIRIN [Concomitant]
  9. ELAVIL [Concomitant]
  10. MARINOL [Concomitant]

REACTIONS (3)
  - ANAEMIA [None]
  - HYPERTENSION [None]
  - MYOCARDIAL INFARCTION [None]
